FAERS Safety Report 11386668 (Version 1)
Quarter: 2015Q3

REPORT INFORMATION
  Report Type: Spontaneous
  Country: US (occurrence: None)
  Receive Date: 20150814
  Receipt Date: 20150814
  Transmission Date: 20151125
  Serious: Yes (Hospitalization)
  Sender: FDA-Public Use
  Company Number: None

PATIENT
  Age: 74 Year
  Sex: Male
  Weight: 86.4 kg

DRUGS (10)
  1. ECOTRIN [Concomitant]
     Active Substance: ASPIRIN
  2. HYGROTEN [Concomitant]
  3. GLUCOPHAGE [Suspect]
     Active Substance: METFORMIN HYDROCHLORIDE
     Indication: DIABETES MELLITUS
     Dosage: 1000 MG BID WITH MEALS PO
     Route: 048
  4. PRADAXA [Concomitant]
     Active Substance: DABIGATRAN ETEXILATE MESYLATE
  5. AMARYL [Suspect]
     Active Substance: GLIMEPIRIDE
     Indication: DIABETES MELLITUS
     Route: 048
  6. ARIMIDEX [Concomitant]
     Active Substance: ANASTROZOLE
  7. COZAAR [Concomitant]
     Active Substance: LOSARTAN POTASSIUM
  8. KCL [Concomitant]
     Active Substance: POTASSIUM CHLORIDE
  9. LIPITOR [Concomitant]
     Active Substance: ATORVASTATIN CALCIUM
  10. COREG [Concomitant]
     Active Substance: CARVEDILOL

REACTIONS (3)
  - Mental status changes [None]
  - Weight decreased [None]
  - Hypoglycaemia [None]

NARRATIVE: CASE EVENT DATE: 20150216
